FAERS Safety Report 9521340 (Version 1)
Quarter: 2013Q1

REPORT INFORMATION
  Report Type: Spontaneous
  Country: US (occurrence: None)
  Receive Date: 20130305
  Receipt Date: 20130305
  Transmission Date: 20140127
  Serious: Yes (Other)
  Sender: FDA-Public Use
  Company Number: 163-21880-12073130

PATIENT
  Age: 48 Year
  Sex: Male

DRUGS (8)
  1. REVLIMID (LENALIDOMIDE) (CAPSULES) [Suspect]
     Indication: PLASMA CELL MYELOMA
     Dosage: 5 MG, 21 IN 21 D, PO
     Route: 048
     Dates: start: 20120312
  2. GABAPENTIN (GABAPENTIN) (UNKNOWN) (GABAPENTIN) [Concomitant]
  3. DILAUDID (HYDROMORPHONE HYDROCHLORIDE) (UNKNOWN) [Concomitant]
  4. COUMADIN (WARFARIN SODIUM) (UNKNOWN) [Concomitant]
  5. IRON [Concomitant]
  6. PHENERGAN (PROMETHAZINE HYDROCHLORIDE) (UNKNOWN) [Concomitant]
  7. PREDNISONE (PREDNISONE) (UNKNOWN) [Concomitant]
  8. MORPHINE SULFATE (MORPHINE SULFATE) (UNKNOWN) [Concomitant]

REACTIONS (3)
  - Pruritus [None]
  - Rash [None]
  - Pyrexia [None]
